FAERS Safety Report 6616546-1 (Version None)
Quarter: 2010Q1

REPORT INFORMATION
  Report Type: 
  Country: None (occurrence: None)
  Receive Date: 20100223
  Receipt Date: 20091212
  Transmission Date: 20100710
  Serious: No
  Sender: FDA-Public Use
  Company Number: 003137

PATIENT
  Sex: Female
  Weight: 52.1 kg

DRUGS (4)
  1. CIMZIA [Suspect]
     Indication: CROHN'S DISEASE
     Dosage: 400MG (STARTED OVER A YEAR AGO) SUBCUTANEOUS
     Route: 058
  2. AZATHOPRINE [Concomitant]
  3. PENTASA [Concomitant]
  4. ENTOCORT EC [Concomitant]

REACTIONS (1)
  - RASH [None]
